FAERS Safety Report 12948709 (Version 3)
Quarter: 2017Q1

REPORT INFORMATION
  Report Type: Spontaneous
  Country: JP (occurrence: JP)
  Receive Date: 20161117
  Receipt Date: 20170210
  Transmission Date: 20170428
  Serious: Yes (Life-Threatening, Hospitalization)
  Sender: FDA-Public Use
  Company Number: JP-ELI_LILLY_AND_COMPANY-JP201611003654

PATIENT
  Age: 2 Year
  Sex: Male
  Weight: 8.5 kg

DRUGS (14)
  1. RIZABEN [Concomitant]
     Active Substance: TRANILAST
     Indication: ANOMALOUS PULMONARY VENOUS CONNECTION
     Dosage: 43.5 MG, TID
     Route: 048
     Dates: start: 201605
  2. RIZABEN [Concomitant]
     Active Substance: TRANILAST
     Indication: PULMONARY VEIN STENOSIS
  3. DIGOSIN [Concomitant]
     Active Substance: DIGOXIN
     Indication: ANOMALOUS PULMONARY VENOUS CONNECTION
     Dosage: 0.08 MG, BID
     Route: 048
     Dates: start: 201605
  4. ASPIRIN                            /00002701/ [Concomitant]
     Active Substance: ASPIRIN
     Indication: PULMONARY VEIN STENOSIS
  5. VOLIBRIS [Concomitant]
     Active Substance: AMBRISENTAN
     Indication: PULMONARY ARTERIAL HYPERTENSION
     Dosage: 0.9 MG, QD
     Route: 048
     Dates: start: 20150914, end: 20161028
  6. ALDACTONE [Concomitant]
     Active Substance: SPIRONOLACTONE
     Indication: ANOMALOUS PULMONARY VENOUS CONNECTION
     Dosage: 18 MG, BID
     Dates: start: 201509
  7. WARFARIN [Concomitant]
     Active Substance: WARFARIN
     Indication: ANOMALOUS PULMONARY VENOUS CONNECTION
     Dosage: 0.5 MG, QD
     Route: 048
     Dates: start: 201607, end: 20161129
  8. ASPIRIN                            /00002701/ [Concomitant]
     Active Substance: ASPIRIN
     Indication: ANOMALOUS PULMONARY VENOUS CONNECTION
     Dosage: 0.04 G, QD
     Route: 048
     Dates: start: 201605, end: 20160928
  9. FUROSEMIDE. [Concomitant]
     Active Substance: FUROSEMIDE
     Indication: PULMONARY VEIN STENOSIS
  10. ALDACTONE [Concomitant]
     Active Substance: SPIRONOLACTONE
     Indication: PULMONARY VEIN STENOSIS
  11. ADCIRCA [Suspect]
     Active Substance: TADALAFIL
     Indication: PULMONARY ARTERIAL HYPERTENSION
     Dosage: 8 MG, QD
     Route: 048
     Dates: start: 20160730, end: 20161101
  12. FUROSEMIDE. [Concomitant]
     Active Substance: FUROSEMIDE
     Indication: ANOMALOUS PULMONARY VENOUS CONNECTION
     Dosage: 18 MG, BID
     Route: 048
     Dates: start: 201509
  13. WARFARIN [Concomitant]
     Active Substance: WARFARIN
     Indication: PULMONARY VEIN STENOSIS
  14. DIGOSIN [Concomitant]
     Active Substance: DIGOXIN
     Indication: PULMONARY VEIN STENOSIS

REACTIONS (2)
  - Wrong technique in product usage process [Unknown]
  - Pulmonary haemorrhage [Recovered/Resolved]

NARRATIVE: CASE EVENT DATE: 20160830
